FAERS Safety Report 9071291 (Version 1)
Quarter: 2013Q1

REPORT INFORMATION
  Report Type: Spontaneous
  Country: US (occurrence: US)
  Receive Date: 20130206
  Receipt Date: 20130206
  Transmission Date: 20140127
  Serious: No
  Sender: FDA-Public Use
  Company Number: US-ALLERGAN-1210055US

PATIENT
  Age: 46 Year
  Sex: Female

DRUGS (5)
  1. RESTASIS? [Suspect]
     Indication: DRY EYE
     Dosage: 2 GTT, BID
     Route: 047
     Dates: start: 201206
  2. PROTONIX                           /01263201/ [Concomitant]
     Indication: GASTROOESOPHAGEAL REFLUX DISEASE
     Dosage: UNK UNK, QD
     Route: 048
  3. MOBIC [Concomitant]
     Indication: OSTEOARTHRITIS
     Dosage: UNK UNK, PRN
     Route: 048
  4. METHIMAZOLE [Concomitant]
     Indication: BASEDOW^S DISEASE
     Dosage: 10 MG, BID
     Route: 048
  5. STEROID ANTIBACTERIALS [Concomitant]
     Indication: DERMATITIS CONTACT
     Dosage: UNK
     Route: 061

REACTIONS (1)
  - Eyelid irritation [Not Recovered/Not Resolved]
